FAERS Safety Report 24008346 (Version 2)
Quarter: 2024Q3

REPORT INFORMATION
  Report Type: Spontaneous
  Country: US (occurrence: US)
  Receive Date: 20240625
  Receipt Date: 20240715
  Transmission Date: 20241017
  Serious: Yes (Other)
  Sender: STEMLINE THERAPEUTICS
  Company Number: US-Stemline Therapeutics, Inc.-2024ST003221

PATIENT
  Age: 74 Year
  Sex: Female

DRUGS (1)
  1. ORSERDU [Suspect]
     Active Substance: ELACESTRANT
     Indication: Product used for unknown indication
     Route: 048
     Dates: start: 20240515

REACTIONS (14)
  - Blood potassium decreased [Unknown]
  - Blindness transient [Unknown]
  - Gait inability [Unknown]
  - Feeling abnormal [Unknown]
  - Fall [Unknown]
  - Wrist fracture [Unknown]
  - Melaena [Recovered/Resolved]
  - Head discomfort [Unknown]
  - Dizziness [Unknown]
  - Asthenia [Unknown]
  - Fatigue [Not Recovered/Not Resolved]
  - Nausea [Unknown]
  - Headache [Unknown]
  - Pain in extremity [Unknown]
